FAERS Safety Report 11241067 (Version 3)
Quarter: 2015Q3

REPORT INFORMATION
  Report Type: Spontaneous
  Country: US (occurrence: US)
  Receive Date: 20150706
  Receipt Date: 20150828
  Transmission Date: 20151125
  Serious: Yes (Hospitalization, Other)
  Sender: FDA-Public Use
  Company Number: US-GLAXOSMITHKLINE-US2015096523

PATIENT
  Sex: Female

DRUGS (7)
  1. LEVAMISOLE [Suspect]
     Active Substance: LEVAMISOLE
     Indication: ACCIDENTAL EXPOSURE TO PRODUCT
     Dosage: DOSAGE FORM: UNSPECIFIED
     Route: 064
  2. COCAINE [Suspect]
     Active Substance: COCAINE
     Indication: DRUG ABUSE
     Dosage: DOSAGE FORM: UNSPECIFIED
     Route: 064
  3. OXYCODONE [Suspect]
     Active Substance: OXYCODONE
     Indication: PRODUCT USED FOR UNKNOWN INDICATION
     Dosage: DOSAGE FORM: UNKNOWN
     Route: 064
  4. METHADONE [Suspect]
     Active Substance: METHADONE HYDROCHLORIDE
     Indication: DRUG DEPENDENCE
     Dosage: DOSAGE FORM: UNKNOWN
     Route: 064
  5. HEROIN [Suspect]
     Active Substance: DIACETYLMORPHINE
     Indication: DRUG ABUSE
     Dosage: DOSAGE FORM: UNSPECIFIED
     Route: 064
  6. NICOTINE. [Suspect]
     Active Substance: NICOTINE
     Indication: PRODUCT USED FOR UNKNOWN INDICATION
     Dosage: DOSAGE FORM: UNSPECIFIED
     Route: 064
  7. CAFFEINE. [Suspect]
     Active Substance: CAFFEINE
     Indication: PRODUCT USED FOR UNKNOWN INDICATION
     Dosage: DOSAGE FORM: UNKNOWN
     Route: 064

REACTIONS (6)
  - Respiratory distress [Unknown]
  - Drug withdrawal syndrome neonatal [Unknown]
  - Thrombocytopenia [Unknown]
  - Foetal exposure during pregnancy [Recovered/Resolved]
  - White blood cell count decreased [Unknown]
  - Neutrophil count decreased [Unknown]
